FAERS Safety Report 18891565 (Version 1)
Quarter: 2021Q1

REPORT INFORMATION
  Report Type: Spontaneous
  Country: SE (occurrence: SE)
  Receive Date: 20210215
  Receipt Date: 20210215
  Transmission Date: 20210420
  Serious: Yes (Hospitalization, Other)
  Sender: FDA-Public Use
  Company Number: SE-TEVA-2021-SE-1879411

PATIENT
  Age: 74 Year
  Sex: Female

DRUGS (2)
  1. METHOTREXATE. [Suspect]
     Active Substance: METHOTREXATE
     Indication: PSORIASIS
     Route: 065
  2. APREMILAST [Suspect]
     Active Substance: APREMILAST
     Indication: PSORIASIS
     Dosage: 120 MILLIGRAM DAILY;
     Route: 065
     Dates: end: 201812

REACTIONS (6)
  - Mass [Recovering/Resolving]
  - Abdominal pain [Unknown]
  - Diarrhoea [Recovered/Resolved]
  - Hepatotoxicity [Unknown]
  - Laryngeal disorder [Recovering/Resolving]
  - Dysphonia [Not Recovered/Not Resolved]
